FAERS Safety Report 9120442 (Version 2)
Quarter: 2013Q2

REPORT INFORMATION
  Report Type: Spontaneous
  Country: NG (occurrence: NG)
  Receive Date: 20130226
  Receipt Date: 20130501
  Transmission Date: 20140414
  Serious: Yes (Hospitalization)
  Sender: FDA-Public Use
  Company Number: PHHY2013NG017573

PATIENT
  Age: 25 Year
  Sex: Male

DRUGS (6)
  1. DIAZEPAM [Suspect]
     Indication: ANAESTHETIC PREMEDICATION
     Dosage: 10 MG, UNK
  2. LIDOCAINE [Concomitant]
  3. EPINEPHRINE [Concomitant]
  4. AMOXICILLIN [Concomitant]
  5. CLOXACILLIN [Concomitant]
  6. METRONIDAZOLE [Concomitant]

REACTIONS (15)
  - Hypertension [Recovered/Resolved]
  - Pain in extremity [Recovering/Resolving]
  - Chest discomfort [Recovering/Resolving]
  - Dizziness [Recovering/Resolving]
  - Aggression [Recovering/Resolving]
  - Restlessness [Recovering/Resolving]
  - Disorientation [Recovering/Resolving]
  - Tachycardia [Recovered/Resolved]
  - Pyrexia [Recovering/Resolving]
  - Local swelling [Recovering/Resolving]
  - Cyanosis [Recovering/Resolving]
  - Blister [Recovered/Resolved]
  - Headache [Recovering/Resolving]
  - Diplopia [Recovering/Resolving]
  - Hypotension [Recovering/Resolving]
